FAERS Safety Report 17880807 (Version 22)
Quarter: 2025Q2

REPORT INFORMATION
  Report Type: Spontaneous
  Country: US (occurrence: US)
  Receive Date: 20200610
  Receipt Date: 20250617
  Transmission Date: 20250717
  Serious: Yes (Other)
  Sender: PFIZER
  Company Number: US-PFIZER INC-2020226137

PATIENT
  Age: 93 Year
  Sex: Female

DRUGS (2)
  1. BOSULIF [Suspect]
     Active Substance: BOSUTINIB MONOHYDRATE
     Indication: Chronic myeloid leukaemia
     Dosage: 400 MG, DAILY (4 TABLETS)
     Route: 048
  2. BOSULIF [Suspect]
     Active Substance: BOSUTINIB MONOHYDRATE
     Dosage: 100 MG TABLET, 3 TABLETS DAILY
     Route: 048

REACTIONS (9)
  - Leukaemia recurrent [Unknown]
  - Back pain [Unknown]
  - Vomiting [Unknown]
  - Diarrhoea [Unknown]
  - Decreased appetite [Unknown]
  - Dyspepsia [Unknown]
  - Contusion [Unknown]
  - Full blood count decreased [Unknown]
  - Intentional dose omission [Unknown]

NARRATIVE: CASE EVENT DATE: 20240101
